FAERS Safety Report 5927431-2 (Version None)
Quarter: 2008Q4

REPORT INFORMATION
  Report Type: 
  Country: None (occurrence: None)
  Receive Date: 20081022
  Receipt Date: 20081022
  Transmission Date: 20090506
  Serious: Yes (Hospitalization)
  Sender: FDA-Public Use
  Company Number: None

PATIENT
  Sex: Male

DRUGS (10)
  1. GMCSF [Suspect]
     Indication: PROSTATE CANCER
     Dosage: 250MG/M2 QD X 14 DAYS FOLLOWED BY 14 DAYS OF REST SQ OFF STUDY 10/3/08
     Route: 058
     Dates: start: 20080907, end: 20080918
  2. ZETIA [Concomitant]
  3. NEXIUM [Concomitant]
  4. TOPROL-XL [Concomitant]
  5. LIPITOR [Concomitant]
  6. ISOSORBIDE [Concomitant]
  7. FOLIC ACID [Concomitant]
  8. ALTACE [Concomitant]
  9. NORVASC [Concomitant]
  10. CIPROFLOXACIN HCL [Suspect]

REACTIONS (5)
  - ASTHENIA [None]
  - DEHYDRATION [None]
  - DISEASE PROGRESSION [None]
  - FATIGUE [None]
  - URINARY TRACT INFECTION [None]
